FAERS Safety Report 20685050 (Version 1)
Quarter: 2022Q2

REPORT INFORMATION
  Report Type: Spontaneous
  Country: US (occurrence: US)
  Receive Date: 20220407
  Receipt Date: 20220407
  Transmission Date: 20220721
  Serious: Yes (Hospitalization)
  Sender: FDA-Public Use
  Company Number: US-drreddys-SPO/USA/22/0148199

PATIENT
  Age: 15 Year
  Sex: Male

DRUGS (2)
  1. VIGABATRIN [Suspect]
     Active Substance: VIGABATRIN
     Indication: Epilepsy
     Route: 048
  2. VIGABATRIN [Suspect]
     Active Substance: VIGABATRIN
     Route: 048

REACTIONS (1)
  - Seizure [Unknown]
